FAERS Safety Report 5215599-5 (Version None)
Quarter: 2007Q1

REPORT INFORMATION
  Report Type: 
  Country: None (occurrence: None)
  Receive Date: 20070123
  Receipt Date: 20070115
  Transmission Date: 20070707
  Serious: Yes (Hospitalization, Other)
  Sender: FDA-Public Use
  Company Number: PHBS2007CA01006

PATIENT
  Age: 69 Year
  Sex: Female

DRUGS (10)
  1. GALANTAMINE HYDROBROMIDE [Suspect]
     Indication: DEMENTIA ALZHEIMER'S TYPE
  2. MIDAZOLAM HCL [Suspect]
     Indication: ANAESTHESIA
     Dosage: 1MG ONCE SINGLE
  3. FENTANYL TRANSDERMAL SYSTEM [Suspect]
     Indication: ANAESTHESIA
     Dosage: 50 UG ONCE SINGLE
  4. PROPOFOL [Suspect]
     Indication: ANAESTHESIA
     Dosage: 130 MG ONCE SINGLE
  5. ROCURONIUM [Suspect]
     Indication: INTUBATION
     Dosage: 40 MG ONCE SINGLE
  6. NITROUS OXIDE W/ OXYGEN [Suspect]
     Indication: ANAESTHESIA
  7. SEVOFLURANE [Suspect]
     Indication: ANAESTHESIA
  8. NEOSTIGMINE [Concomitant]
  9. GLYCOPYRROLATE [Concomitant]
  10. RIVASTIGMIN [Suspect]
     Indication: DEMENTIA ALZHEIMER'S TYPE

REACTIONS (4)
  - COLPORRHAPHY [None]
  - CONDITION AGGRAVATED [None]
  - SINUS BRADYCARDIA [None]
  - SURGERY [None]
